FAERS Safety Report 4437464-3 (Version None)
Quarter: 2004Q3

REPORT INFORMATION
  Report Type: 
  Country: None (occurrence: None)
  Receive Date: 20040830
  Receipt Date: 20040818
  Transmission Date: 20050211
  Serious: No
  Sender: FDA-Public Use
  Company Number: IT-MERCK-0408USA02081

PATIENT
  Age: 12 Month
  Sex: Female

DRUGS (2)
  1. DACTINOMYCIN [Suspect]
     Indication: RENAL MASS
     Route: 065
  2. VINCRISTINE SULFATE [Concomitant]
     Indication: RENAL MASS
     Route: 065

REACTIONS (2)
  - LYMPHADENOPATHY [None]
  - NEPHROBLASTOMA [None]
